FAERS Safety Report 7367412-8 (Version None)
Quarter: 2011Q1

REPORT INFORMATION
  Report Type: 
  Country: None (occurrence: None)
  Receive Date: 20110322
  Receipt Date: 20110316
  Transmission Date: 20110831
  Serious: Yes (Life-Threatening, Hospitalization)
  Sender: FDA-Public Use
  Company Number: FR-GENZYME-RENA-1001129

PATIENT

DRUGS (1)
  1. RENVELA [Suspect]
     Indication: HYPERPHOSPHATAEMIA
     Dosage: UNK
     Route: 048
     Dates: start: 20110214, end: 20110221

REACTIONS (7)
  - PSEUDOMEMBRANOUS COLITIS [None]
  - CONSTIPATION [None]
  - SEPTIC SHOCK [None]
  - LARGE INTESTINAL ULCER [None]
  - DIARRHOEA [None]
  - PROCTITIS [None]
  - ABDOMINAL PAIN [None]
